FAERS Safety Report 14035708 (Version 1)
Quarter: 2017Q4

REPORT INFORMATION
  Report Type: Spontaneous
  Country: US (occurrence: US)
  Receive Date: 20171003
  Receipt Date: 20171003
  Transmission Date: 20180321
  Serious: No
  Sender: FDA-Public Use
  Company Number: US-AMGEN-USASP2016162755

PATIENT
  Sex: Female

DRUGS (3)
  1. OPDIVO [Concomitant]
     Active Substance: NIVOLUMAB
     Dosage: UNK
     Dates: start: 201610
  2. XGEVA [Suspect]
     Active Substance: DENOSUMAB
     Indication: METASTASES TO BONE
     Dosage: UNK
     Route: 065
     Dates: start: 201610
  3. AVASTIN [Concomitant]
     Active Substance: BEVACIZUMAB
     Dosage: UNK
     Dates: start: 201610

REACTIONS (1)
  - Bone pain [Unknown]
